FAERS Safety Report 5024272-8 (Version None)
Quarter: 2006Q2

REPORT INFORMATION
  Report Type: 
  Country: None (occurrence: None)
  Receive Date: 20060607
  Receipt Date: 20060516
  Transmission Date: 20061013
  Serious: Yes (Other)
  Sender: FDA-Public Use
  Company Number: S06-FRA-01011-01

PATIENT
  Age: 45 Year
  Sex: Female

DRUGS (3)
  1. ESCITALOPRAM OXALATE [Suspect]
     Indication: DEPRESSION
     Dosage: 20 MG QD PO
     Route: 048
     Dates: start: 20060227, end: 20060227
  2. LEXOMIL (BROMAZEPAM) [Concomitant]
  3. ZOLPIDEM TARTRATE [Concomitant]

REACTIONS (1)
  - FOOD ALLERGY [None]
